FAERS Safety Report 16601637 (Version 2)
Quarter: 2019Q3

REPORT INFORMATION
  Report Type: Report from Study
  Country: DK (occurrence: DK)
  Receive Date: 20190719
  Receipt Date: 20190930
  Transmission Date: 20191004
  Serious: Yes (Hospitalization)
  Sender: FDA-Public Use
  Company Number: DK-NOVOPROD-672746

PATIENT
  Age: 55 Year
  Sex: Female
  Weight: 115 kg

DRUGS (5)
  1. LIRAGLUTIDE 6MG/ML PDS290 [Suspect]
     Active Substance: LIRAGLUTIDE
     Indication: OBESITY
     Dosage: 3.0,MG,ONCE PER DAY
     Route: 058
     Dates: start: 20190514
  2. BRILIQUE [Concomitant]
     Active Substance: TICAGRELOR
     Indication: MUSCULOSKELETAL PAIN
     Dates: start: 20190708, end: 20190712
  3. ARIXTRA [Concomitant]
     Active Substance: FONDAPARINUX SODIUM
     Indication: MUSCULOSKELETAL PAIN
     Dates: start: 20190708, end: 20190712
  4. MAGNYL [ACETYLSALICYLIC ACID] [Concomitant]
     Active Substance: ASPIRIN
     Indication: MUSCULOSKELETAL PAIN
     Dates: start: 20190708, end: 20190712
  5. MORFIN [MORPHINE] [Concomitant]
     Active Substance: MORPHINE
     Indication: MUSCULOSKELETAL PAIN
     Dates: start: 20190708, end: 20190713

REACTIONS (1)
  - Gastrooesophageal reflux disease [Not Recovered/Not Resolved]

NARRATIVE: CASE EVENT DATE: 20190705
